FAERS Safety Report 7808633-7 (Version None)
Quarter: 2011Q4

REPORT INFORMATION
  Report Type: 
  Country: None (occurrence: None)
  Receive Date: 20111006
  Receipt Date: 20110929
  Transmission Date: 20120403
  Serious: Yes (Hospitalization)
  Sender: FDA-Public Use
  Company Number: 2011SP046308

PATIENT
  Sex: Male

DRUGS (2)
  1. NOXAFIL [Suspect]
     Indication: ANTIFUNGAL TREATMENT
     Dosage: 5 ML;QID;PO
     Route: 048
     Dates: start: 20110801, end: 20110901
  2. NOXAFIL [Suspect]
     Indication: ANTIFUNGAL TREATMENT
     Dosage: 5 ML;QID;PO
     Route: 048
     Dates: start: 20110201, end: 20110301

REACTIONS (1)
  - PANCYTOPENIA [None]
